FAERS Safety Report 10486078 (Version 1)
Quarter: 2014Q4

REPORT INFORMATION
  Report Type: Other
  Country: IN (occurrence: IN)
  Receive Date: 20141001
  Receipt Date: 20141001
  Transmission Date: 20150528
  Serious: Yes (Other)
  Sender: FDA-Public Use
  Company Number: IN-LUPIN PHARMACEUTICALS INC.-2014-01482

PATIENT
  Age: 48 Year
  Sex: Female

DRUGS (5)
  1. ZOLPIDEM [Suspect]
     Active Substance: ZOLPIDEM\ZOLPIDEM TARTRATE
     Indication: DEPRESSION
     Dosage: 10 MG
     Route: 065
  2. ZOLPIDEM [Suspect]
     Active Substance: ZOLPIDEM\ZOLPIDEM TARTRATE
     Dosage: 400-500 MG
     Route: 065
  3. ESCITALOPRAM [Concomitant]
     Active Substance: ESCITALOPRAM OXALATE
     Indication: DEPRESSION
     Dosage: 10 MG
     Route: 065
  4. DIVALPROEX SODIUM. [Concomitant]
     Active Substance: DIVALPROEX SODIUM
     Indication: DEPRESSION
     Dosage: 1 MG
     Route: 065
  5. ZOLPIDEM [Suspect]
     Active Substance: ZOLPIDEM\ZOLPIDEM TARTRATE
     Dosage: 200 MG
     Route: 065

REACTIONS (5)
  - Drug tolerance [Unknown]
  - Memory impairment [Unknown]
  - Depressed mood [Recovering/Resolving]
  - Drug dependence [Recovering/Resolving]
  - Irritability [Unknown]
